FAERS Safety Report 10166397 (Version 3)
Quarter: 2014Q3

REPORT INFORMATION
  Report Type: Spontaneous
  Country: GR (occurrence: GR)
  Receive Date: 20140512
  Receipt Date: 20140722
  Transmission Date: 20150326
  Serious: Yes (Hospitalization, Other)
  Sender: FDA-Public Use
  Company Number: GR-AMGEN INC.-GRCSP2013069478

PATIENT
  Sex: Male

DRUGS (1)
  1. ENBREL [Suspect]
     Active Substance: ETANERCEPT
     Indication: ANKYLOSING SPONDYLITIS
     Dosage: 50 MG, WEEKLY
     Route: 065
     Dates: end: 201401

REACTIONS (7)
  - Eyelid oedema [Recovered/Resolved]
  - Photophobia [Not Recovered/Not Resolved]
  - Prostatitis [Recovering/Resolving]
  - Blepharitis [Recovered/Resolved]
  - Eyelid pain [Recovered/Resolved]
  - Blood creatinine increased [Not Recovered/Not Resolved]
  - Lacrimation increased [Recovered/Resolved]
